FAERS Safety Report 9412696 (Version 1)
Quarter: 2013Q3

REPORT INFORMATION
  Report Type: Spontaneous
  Country: CA (occurrence: CA)
  Receive Date: 20130722
  Receipt Date: 20130722
  Transmission Date: 20140515
  Serious: Yes (Other)
  Sender: FDA-Public Use
  Company Number: CA-009507513-1306CAN003483

PATIENT
  Sex: Female
  Weight: 60 kg

DRUGS (3)
  1. SINEMET [Suspect]
     Indication: PARKINSON^S DISEASE
     Dosage: 5 X 100 MG LEVODOPA/25 MG CARBIDOPA
     Route: 048
     Dates: start: 2009
  2. CALTRATE [Concomitant]
     Indication: ROUTINE HEALTH MAINTENANCE
     Dosage: 600 MG, QD
     Route: 048
     Dates: start: 2000
  3. VITAMIN D (UNSPECIFIED) [Concomitant]
     Indication: ROUTINE HEALTH MAINTENANCE
     Dosage: UNK
     Dates: start: 2010

REACTIONS (7)
  - Fatigue [Not Recovered/Not Resolved]
  - Musculoskeletal stiffness [Not Recovered/Not Resolved]
  - Dizziness [Unknown]
  - Dizziness [Unknown]
  - Confusional state [Unknown]
  - Bradyphrenia [Unknown]
  - Movement disorder [Unknown]
